FAERS Safety Report 19842234 (Version 12)
Quarter: 2023Q1

REPORT INFORMATION
  Report Type: Report from Study
  Country: US (occurrence: US)
  Receive Date: 20210915
  Receipt Date: 20230214
  Transmission Date: 20230418
  Serious: Yes (Other)
  Sender: FDA-Public Use
  Company Number: US-JAZZ-2021-US-016862

PATIENT
  Sex: Male
  Weight: 98 kg

DRUGS (33)
  1. XYWAV [Suspect]
     Active Substance: CALCIUM OXYBATE\MAGNESIUM OXYBATE\POTASSIUM OXYBATE\SODIUM OXYBATE
     Indication: Narcolepsy
     Dosage: 4.5 GRAM, BID
     Route: 048
     Dates: start: 202101
  2. XYWAV [Suspect]
     Active Substance: CALCIUM OXYBATE\MAGNESIUM OXYBATE\POTASSIUM OXYBATE\SODIUM OXYBATE
     Indication: Hypersomnia
     Dosage: 4.5 GRAM, TID
  3. XYWAV [Suspect]
     Active Substance: CALCIUM OXYBATE\MAGNESIUM OXYBATE\POTASSIUM OXYBATE\SODIUM OXYBATE
     Indication: Hypersomnia
  4. ANDROGEL [Suspect]
     Active Substance: TESTOSTERONE
     Indication: Product used for unknown indication
     Dosage: UNK
  5. METHYLDOPA [Suspect]
     Active Substance: METHYLDOPA
     Indication: Product used for unknown indication
  6. VICODIN [Suspect]
     Active Substance: ACETAMINOPHEN\HYDROCODONE BITARTRATE
     Indication: Pain
  7. DEPAKOTE [Suspect]
     Active Substance: DIVALPROEX SODIUM
     Indication: Product used for unknown indication
  8. REPATHA [Concomitant]
     Active Substance: EVOLOCUMAB
     Indication: Product used for unknown indication
     Dosage: UNK
  9. MOUNJARO [Concomitant]
     Active Substance: TIRZEPATIDE
     Indication: Product used for unknown indication
     Dosage: 5 MG/0.5 ML PEN
     Dates: start: 20221024
  10. FARXIGA [Concomitant]
     Active Substance: DAPAGLIFLOZIN PROPANEDIOL
     Indication: Product used for unknown indication
  11. VIBRAMYCIN [Concomitant]
     Active Substance: DOXYCYCLINE
     Indication: Product used for unknown indication
  12. ZETIA [Concomitant]
     Active Substance: EZETIMIBE
     Indication: Product used for unknown indication
     Dosage: UNK
  13. PEPCID AC [Concomitant]
     Active Substance: FAMOTIDINE
     Indication: Product used for unknown indication
  14. ALLEGRA ALLERGY [Concomitant]
     Active Substance: FEXOFENADINE HYDROCHLORIDE
     Indication: Product used for unknown indication
  15. FLONASE [Concomitant]
     Active Substance: FLUTICASONE PROPIONATE
     Indication: Product used for unknown indication
  16. GUANFACINE [Concomitant]
     Active Substance: GUANFACINE
     Indication: Product used for unknown indication
     Dosage: UNK
  17. IPRATROPIUM BROMIDE [Concomitant]
     Active Substance: IPRATROPIUM BROMIDE
     Indication: Product used for unknown indication
     Dosage: UNK
  18. XIIDRA [Concomitant]
     Active Substance: LIFITEGRAST
     Indication: Product used for unknown indication
  19. LITHIUM [Concomitant]
     Active Substance: LITHIUM
     Indication: Product used for unknown indication
  20. SAVELLA [Concomitant]
     Active Substance: MILNACIPRAN HYDROCHLORIDE
     Indication: Product used for unknown indication
  21. CORGARD [Concomitant]
     Active Substance: NADOLOL
     Indication: Product used for unknown indication
  22. FISH OIL [Concomitant]
     Active Substance: FISH OIL
     Indication: Product used for unknown indication
  23. HETLIOZ [Concomitant]
     Active Substance: TASIMELTEON
     Indication: Product used for unknown indication
  24. ZOLPIDEM [Concomitant]
     Active Substance: ZOLPIDEM TARTRATE
     Indication: Product used for unknown indication
  25. ZOLPIDEM TARTRATE [Concomitant]
     Active Substance: ZOLPIDEM TARTRATE
     Indication: Product used for unknown indication
  26. XYOSTED [Concomitant]
     Active Substance: TESTOSTERONE ENANTHATE
     Dosage: UNK
     Dates: start: 20211214
  27. KEFLEX [Concomitant]
     Active Substance: CEPHALEXIN
     Indication: Product used for unknown indication
     Dosage: UNK
     Dates: start: 20221027
  28. FENTANYL CITRATE [Concomitant]
     Active Substance: FENTANYL CITRATE
     Indication: Product used for unknown indication
     Dosage: 250 MCG/5 ML
     Dates: start: 20221128
  29. XANAX [Concomitant]
     Active Substance: ALPRAZOLAM
     Indication: Product used for unknown indication
     Dosage: UNK
  30. REPATHA [Concomitant]
     Active Substance: EVOLOCUMAB
     Indication: Product used for unknown indication
     Dosage: 140 MG/ML EVERY 2 WEEKS
  31. AMLODIPINE BESYLATE [Concomitant]
     Active Substance: AMLODIPINE BESYLATE
     Indication: Product used for unknown indication
     Dosage: 2.5 GRAM
     Dates: start: 20221130
  32. AMLODIPINE BESYLATE [Concomitant]
     Active Substance: AMLODIPINE BESYLATE
     Dosage: 5 MILLIGRAM
     Dates: start: 20221219
  33. TRINTELLIX [Concomitant]
     Active Substance: VORTIOXETINE HYDROBROMIDE
     Indication: Product used for unknown indication
     Dosage: UNK
     Dates: start: 20230207

REACTIONS (15)
  - Spinal pain [Not Recovered/Not Resolved]
  - Blood pressure increased [Unknown]
  - Tachycardia [Unknown]
  - Gait disturbance [Unknown]
  - Drug hypersensitivity [Unknown]
  - Frustration tolerance decreased [Unknown]
  - Acne [Unknown]
  - Arthralgia [Unknown]
  - Decreased appetite [Unknown]
  - Skin discolouration [Unknown]
  - Visual impairment [Unknown]
  - Mood altered [Unknown]
  - Pre-existing condition improved [Unknown]
  - Intentional product use issue [Unknown]
  - Off label use [Unknown]
